FAERS Safety Report 10397517 (Version 3)
Quarter: 2014Q4

REPORT INFORMATION
  Report Type: Spontaneous
  Country: US (occurrence: US)
  Receive Date: 20140820
  Receipt Date: 20141103
  Transmission Date: 20150528
  Serious: Yes (Death, Other)
  Sender: FDA-Public Use
  Company Number: US-009507513-1408USA009645

PATIENT
  Sex: Female

DRUGS (2)
  1. NUVARING [Suspect]
     Active Substance: ETHINYL ESTRADIOL\ETONOGESTREL
     Indication: CONTRACEPTION
     Dosage: UNK
     Route: 067
     Dates: start: 20091111
  2. OXYCODONE [Concomitant]
     Active Substance: OXYCODONE
     Indication: PRODUCT USED FOR UNKNOWN INDICATION

REACTIONS (6)
  - Deep vein thrombosis [Unknown]
  - Migraine [Unknown]
  - Stress fracture [Unknown]
  - Pulmonary embolism [Fatal]
  - Diabetes mellitus [Unknown]
  - Sinus operation [Unknown]

NARRATIVE: CASE EVENT DATE: 20100721
